FAERS Safety Report 16060452 (Version 1)
Quarter: 2019Q1

REPORT INFORMATION
  Report Type: Report from Study
  Country: US (occurrence: US)
  Receive Date: 20190312
  Receipt Date: 20190312
  Transmission Date: 20190418
  Serious: Yes (Other)
  Sender: FDA-Public Use
  Company Number: US-AEGERION PHARMACEUTICAL, INC-AEGR004168

PATIENT
  Age: 58 Year
  Sex: Male
  Weight: 81.63 kg

DRUGS (1)
  1. JUXTAPID [Suspect]
     Active Substance: LOMITAPIDE MESYLATE
     Indication: TYPE IIA HYPERLIPIDAEMIA
     Dosage: 5 MG, QD
     Route: 048
     Dates: start: 20151108, end: 20190222

REACTIONS (2)
  - Therapy cessation [Unknown]
  - Carotid artery disease [Unknown]

NARRATIVE: CASE EVENT DATE: 20190222
